FAERS Safety Report 14940569 (Version 2)
Quarter: 2018Q2

REPORT INFORMATION
  Report Type: Spontaneous
  Country: CH (occurrence: CH)
  Receive Date: 20180525
  Receipt Date: 20180530
  Transmission Date: 20180711
  Serious: Yes (Other)
  Sender: FDA-Public Use
  Company Number: CH-PFIZER INC-2018210983

PATIENT
  Age: 77 Year
  Sex: Male

DRUGS (14)
  1. LACRYCON /02211501/ [Concomitant]
  2. MYDOCALM /00293002/ [Concomitant]
     Active Substance: TOLPERISONE HYDROCHLORIDE
     Dates: start: 2013, end: 201804
  3. CALCIMAGON D3 [Concomitant]
     Active Substance: CALCIUM\CHOLECALCIFEROL
     Dosage: UNK
     Dates: start: 2016
  4. NEXIUM MUPS [Suspect]
     Active Substance: ESOMEPRAZOLE MAGNESIUM
     Dosage: 20 MG, 1X/DAY
     Route: 048
     Dates: start: 2013, end: 201804
  5. OXYNORM [Concomitant]
     Active Substance: OXYCODONE HYDROCHLORIDE
     Dates: start: 2013, end: 201802
  6. SAROTEN RETARD [Suspect]
     Active Substance: AMITRIPTYLINE
     Dosage: 50 MG, 1X/DAY
     Route: 048
     Dates: start: 20180321
  7. FLATULEX /06269601/ [Concomitant]
     Dates: start: 2016
  8. MYCOSTATINE [Concomitant]
     Active Substance: NYSTATIN
     Dates: start: 201804
  9. ZOLPIDEM [Suspect]
     Active Substance: ZOLPIDEM\ZOLPIDEM TARTRATE
     Dosage: 5 MG, 1X/DAY (AS NECESSARY, SINCE YEARS, BRAND UNKNOWN)
     Route: 048
  10. CO AMOXICILLIN [Concomitant]
     Active Substance: AMOXICILLIN\CLAVULANATE POTASSIUM
     Dates: start: 20180409, end: 20180417
  11. DAFALGAN [Suspect]
     Active Substance: ACETAMINOPHEN
     Dosage: 1000 MG, 3X/DAY (+ 1 G/D AS NECESSARY)
     Route: 048
     Dates: start: 2008
  12. XANAX [Suspect]
     Active Substance: ALPRAZOLAM
     Dosage: 0.5 MG, 5X/DAILY
     Route: 048
     Dates: start: 2013
  13. LAXOBERON [Suspect]
     Active Substance: SODIUM PICOSULFATE
     Dosage: 5 MG, DAILY (AS NEEDED)
     Route: 048
     Dates: start: 2013
  14. NUTROF TOTAL [Concomitant]
     Dates: start: 2013

REACTIONS (2)
  - Eosinophilia [Not Recovered/Not Resolved]
  - Disease progression [Not Recovered/Not Resolved]

NARRATIVE: CASE EVENT DATE: 2018
